FAERS Safety Report 6100170-3 (Version None)
Quarter: 2009Q1

REPORT INFORMATION
  Report Type: 
  Country: None (occurrence: None)
  Receive Date: 20090302
  Receipt Date: 20090302
  Transmission Date: 20090719
  Serious: Yes (Other)
  Sender: FDA-Public Use
  Company Number: None

PATIENT
  Sex: Male
  Weight: 111.1313 kg

DRUGS (1)
  1. GLYBURIDE AND METFORMIN HCL [Suspect]
     Dosage: 2 TABLETS TWICE A DAY PO
     Route: 048
     Dates: start: 20090220, end: 20090226

REACTIONS (3)
  - BLOOD GLUCOSE INCREASED [None]
  - POOR QUALITY DRUG ADMINISTERED [None]
  - PRODUCT QUALITY ISSUE [None]
